FAERS Safety Report 7305090-4 (Version None)
Quarter: 2011Q1

REPORT INFORMATION
  Report Type: 
  Country: None (occurrence: None)
  Receive Date: 20110222
  Receipt Date: 20110209
  Transmission Date: 20110831
  Serious: Yes (Death, Life-Threatening, Hospitalization, Other)
  Sender: FDA-Public Use
  Company Number: US-CELGENEUS-163-21880-10070460

PATIENT
  Sex: Female

DRUGS (8)
  1. REVLIMID [Suspect]
     Route: 048
     Dates: start: 20100614, end: 20100626
  2. RED BLOOD CELLS [Concomitant]
     Dosage: 2 UNITS
     Route: 051
     Dates: start: 20100601, end: 20100601
  3. PREVACID [Concomitant]
     Route: 048
     Dates: end: 20100627
  4. HEPARIN [Concomitant]
     Route: 065
     Dates: end: 20100601
  5. ALBUTEROL [Concomitant]
     Route: 065
  6. IRON [Suspect]
     Route: 051
  7. VICODIN [Concomitant]
     Route: 065
  8. INTEGRILIN [Concomitant]
     Route: 065
     Dates: end: 20100601

REACTIONS (4)
  - HEPATIC ENZYME INCREASED [None]
  - MYOCARDIAL INFARCTION [None]
  - GASTROINTESTINAL HAEMORRHAGE [None]
  - CARDIAC ARREST [None]
